FAERS Safety Report 4530183-4 (Version None)
Quarter: 2004Q4

REPORT INFORMATION
  Report Type: 
  Country: None (occurrence: None)
  Receive Date: 20041215
  Receipt Date: 20041215
  Transmission Date: 20050328
  Serious: Yes (Death)
  Sender: FDA-Public Use
  Company Number: None

PATIENT
  Sex: Male

DRUGS (2)
  1. ESTRAMUSTINE [Suspect]
     Indication: PROSTATE CANCER METASTATIC
     Dosage: 140MG  BID ORAL
     Route: 048
     Dates: start: 20041025, end: 20041122
  2. TAXOTERE [Suspect]
     Indication: PROSTATE CANCER METASTATIC
     Dosage: 76 MG  WEEKLY INTRAVENOUS
     Route: 042
     Dates: start: 20041026, end: 20041130

REACTIONS (2)
  - NEUTROPENIA [None]
  - PNEUMONIA VIRAL [None]
